FAERS Safety Report 23750257 (Version 1)
Quarter: 2024Q2

REPORT INFORMATION
  Report Type: Spontaneous
  Country: US (occurrence: None)
  Receive Date: 20240417
  Receipt Date: 20240417
  Transmission Date: 20240715
  Serious: Yes (Hospitalization)
  Sender: FDA-Public Use
  Company Number: US-ROCHE-3544914

PATIENT
  Sex: Female

DRUGS (1)
  1. KADCYLA [Suspect]
     Active Substance: ADO-TRASTUZUMAB EMTANSINE
     Indication: Neoplasm malignant
     Dosage: PATIENT HAS RECEIVED SEVEN ROUNDS OF INFUSIONS
     Route: 065

REACTIONS (4)
  - Pulmonary fibrosis [Not Recovered/Not Resolved]
  - Hypoxia [Unknown]
  - Gait disturbance [Unknown]
  - Dyspnoea [Unknown]
